FAERS Safety Report 6779267 (Version 2)
Quarter: 2016Q1

REPORT INFORMATION
  Report Type: Report from Study
  Country: FR (occurrence: FR)
  Receive Date: 20081006
  Receipt Date: 20160120
  Transmission Date: 20160526
  Serious: Yes (Life-Threatening, Hospitalization, Other)
  Sender: FDA-Public Use
  Company Number: FR-JNJFOC-20080802321

PATIENT
  Age: 72 Year
  Sex: Male
  Weight: 84 kg

DRUGS (14)
  1. HYDROCORTISONE. [Concomitant]
     Active Substance: HYDROCORTISONE
     Indication: COLITIS ULCERATIVE
  2. PREVISCAN (FLUINDIONE) [Concomitant]
     Active Substance: FLUINDIONE
     Indication: CARDIAC DISORDER
     Dosage: ^DOSE: 20; UNIT: 3/4^
  3. IMODIUM [Concomitant]
     Active Substance: LOPERAMIDE HYDROCHLORIDE
     Indication: DIARRHOEA
     Dosage: ^DOSE: 0.2; UNIT: 1^
     Route: 048
  4. FLECAINE [Concomitant]
     Active Substance: FLECAINIDE
     Indication: TACHYCARDIA
     Route: 048
  5. REMICADE [Suspect]
     Active Substance: INFLIXIMAB
     Indication: COLITIS ULCERATIVE
     Route: 042
     Dates: start: 20080527, end: 20080605
  6. NOVORAPID [Concomitant]
     Active Substance: INSULIN ASPART
     Indication: DIABETES MELLITUS
     Dosage: ^DOSE: 1000; UNIT: 1; ROUTE: ORAL^
     Route: 048
  7. ZOCOR [Concomitant]
     Active Substance: SIMVASTATIN
     Indication: HYPERCHOLESTEROLAEMIA
     Dosage: ^DOSE: 20^
     Route: 048
  8. SPECIAFOLDINE [Concomitant]
     Active Substance: FOLIC ACID
     Indication: ANAEMIA
     Dosage: ^DOSE: 5^
     Route: 048
  9. XALATAN [Concomitant]
     Active Substance: LATANOPROST
     Indication: GLAUCOMA
     Dosage: ROUTE: LOCAL
  10. AZOPT [Concomitant]
     Active Substance: BRINZOLAMIDE
     Indication: GLAUCOMA
     Dosage: ^DOSE: 10; ROUTE: LOCAL^
  11. KARDEGIC [Concomitant]
     Active Substance: ASPIRIN LYSINE
     Dates: end: 20080627
  12. SOTALOL. [Concomitant]
     Active Substance: SOTALOL
     Indication: TACHYCARDIA
     Dosage: ^DOSE: 80; UNIT: 1/2^
  13. SPASFON [Concomitant]
     Active Substance: PHLOROGLUCINOL
     Indication: PAIN
     Dosage: ^DOSE: 80; UNIT: 1^
     Route: 048
  14. IMOVANE [Concomitant]
     Active Substance: ZOPICLONE
     Indication: INSOMNIA
     Dosage: ^DOSE: 3.75^

REACTIONS (3)
  - Colitis [Recovered/Resolved]
  - Escherichia infection [Unknown]
  - Proctitis [Unknown]

NARRATIVE: CASE EVENT DATE: 20080616
